FAERS Safety Report 17985240 (Version 1)
Quarter: 2020Q3

REPORT INFORMATION
  Report Type: Spontaneous
  Country: US (occurrence: US)
  Receive Date: 20200706
  Receipt Date: 20200706
  Transmission Date: 20201103
  Serious: Yes (Hospitalization)
  Sender: FDA-Public Use
  Company Number: US-MYLANLABS-2020M1060994

PATIENT
  Age: 14 Year
  Sex: Male

DRUGS (3)
  1. TEMOZOLOMIDE. [Suspect]
     Active Substance: TEMOZOLOMIDE
     Indication: GLIOBLASTOMA
     Dosage: 90 MILLIGRAM/SQ. METER
     Route: 065
  2. LOMUSTINE. [Suspect]
     Active Substance: LOMUSTINE
     Indication: GLIOBLASTOMA
     Dosage: UNK
     Route: 065
  3. RECOMBINANT POLIO VIRUS VACCINE ISTARI ONCOLOGY [RECOMBINANT POLIOVIRUS THERAPY] [Suspect]
     Active Substance: INVESTIGATIONAL PRODUCT
     Indication: GLIOBLASTOMA
     Dosage: UNK
     Route: 065

REACTIONS (1)
  - Drug resistance [Unknown]
